FAERS Safety Report 12971507 (Version 3)
Quarter: 2021Q3

REPORT INFORMATION
  Report Type: Spontaneous
  Country: US (occurrence: US)
  Receive Date: 20161123
  Receipt Date: 20210817
  Transmission Date: 20211014
  Serious: No
  Sender: FDA-Public Use
  Company Number: US-JAZZ-2016-US-019094

PATIENT
  Sex: Female

DRUGS (49)
  1. XYREM [Suspect]
     Active Substance: SODIUM OXYBATE
     Indication: NARCOLEPSY
     Dosage: 3 G, BID
     Route: 048
     Dates: start: 200910, end: 200910
  2. TIZANIDINE HCL [Concomitant]
     Active Substance: TIZANIDINE HYDROCHLORIDE
  3. DIAZEPAM. [Concomitant]
     Active Substance: DIAZEPAM
  4. CYMBALTA [Concomitant]
     Active Substance: DULOXETINE HYDROCHLORIDE
  5. HYOSCYAMINE SULFATE. [Concomitant]
     Active Substance: HYOSCYAMINE SULFATE
  6. MINOCYCLINE [Concomitant]
     Active Substance: MINOCYCLINE HYDROCHLORIDE
  7. TOBRAMYCIN. [Concomitant]
     Active Substance: TOBRAMYCIN
  8. DEXILANT [Concomitant]
     Active Substance: DEXLANSOPRAZOLE
  9. IMITREX [Concomitant]
     Active Substance: SUMATRIPTAN SUCCINATE
  10. TOVIAZ [Concomitant]
     Active Substance: FESOTERODINE FUMARATE
  11. TRAMADOL. [Concomitant]
     Active Substance: TRAMADOL
  12. SOMA [Concomitant]
     Active Substance: CARISOPRODOL
  13. HYDROCODONE [Concomitant]
     Active Substance: HYDROCODONE
  14. CRESTOR [Concomitant]
     Active Substance: ROSUVASTATIN CALCIUM
  15. LEVOTHYROXINE. [Concomitant]
     Active Substance: LEVOTHYROXINE
  16. XYREM [Suspect]
     Active Substance: SODIUM OXYBATE
     Dosage: 4.5 G, BID
     Route: 048
     Dates: start: 201011
  17. BACLOFEN. [Concomitant]
     Active Substance: BACLOFEN
  18. SYNTHROID [Concomitant]
     Active Substance: LEVOTHYROXINE SODIUM
  19. ZYRTEC?D [Concomitant]
     Active Substance: CETIRIZINE HYDROCHLORIDE\PSEUDOEPHEDRINE HYDROCHLORIDE
  20. ASPIRIN 81 [Concomitant]
     Active Substance: ASPIRIN
  21. XYREM [Suspect]
     Active Substance: SODIUM OXYBATE
     Indication: CATAPLEXY
     Dosage: DOSE ADJUSTMENTS
     Route: 048
     Dates: start: 200910, end: 2009
  22. XYREM [Suspect]
     Active Substance: SODIUM OXYBATE
     Dosage: 4.5 G, BID
     Route: 048
     Dates: start: 2009, end: 2009
  23. XYREM [Suspect]
     Active Substance: SODIUM OXYBATE
     Dosage: DOSE ADJUSTMENTS
     Route: 048
     Dates: start: 201010, end: 201011
  24. CYCLOBENZAPRINE. [Concomitant]
     Active Substance: CYCLOBENZAPRINE
  25. ZIPSOR [Concomitant]
     Active Substance: DICLOFENAC POTASSIUM
  26. JOLESSA [Concomitant]
     Active Substance: ETHINYL ESTRADIOL\LEVONORGESTREL
  27. SINEMET [Concomitant]
     Active Substance: CARBIDOPA\LEVODOPA
  28. VITAMIN D3 [Concomitant]
     Active Substance: CHOLECALCIFEROL
  29. XYREM [Suspect]
     Active Substance: SODIUM OXYBATE
     Dosage: 2.25 G, BID
     Route: 048
     Dates: start: 201010, end: 201010
  30. ONDANSETRON HCL [Concomitant]
     Active Substance: ONDANSETRON HYDROCHLORIDE
  31. SEASONIQUE [Concomitant]
     Active Substance: ETHINYL ESTRADIOL\LEVONORGESTREL
  32. ATORVASTATIN [Concomitant]
     Active Substance: ATORVASTATIN
  33. DULCOLAX (BISACODYL) [Concomitant]
     Active Substance: BISACODYL
  34. CEFTRIAXONE. [Concomitant]
     Active Substance: CEFTRIAXONE
  35. PERCOCET [Concomitant]
     Active Substance: ACETAMINOPHEN\OXYCODONE HYDROCHLORIDE
  36. CLINDESSE [Concomitant]
     Active Substance: CLINDAMYCIN PHOSPHATE
  37. PROPRANOLOL [Concomitant]
     Active Substance: PROPRANOLOL HYDROCHLORIDE
  38. EPIDUO [Concomitant]
     Active Substance: ADAPALENE\BENZOYL PEROXIDE
  39. LIDOCAINE. [Concomitant]
     Active Substance: LIDOCAINE
  40. LINZESS [Concomitant]
     Active Substance: LINACLOTIDE
  41. ONDANSETRON ODT [Concomitant]
     Active Substance: ONDANSETRON
  42. LIDOCAINE HCL [Concomitant]
     Active Substance: LIDOCAINE HYDROCHLORIDE
  43. LUPRON DEPOT [Concomitant]
     Active Substance: LEUPROLIDE ACETATE
  44. OXYCODONE HYDROCHLORIDE. [Concomitant]
     Active Substance: OXYCODONE HYDROCHLORIDE
  45. DICLOFENAC [Concomitant]
     Active Substance: DICLOFENAC
  46. NASCOBAL [Concomitant]
     Active Substance: CYANOCOBALAMIN
  47. KEPPRA [Concomitant]
     Active Substance: LEVETIRACETAM
  48. OMNICEF R [Concomitant]
     Active Substance: CEFDINIR
  49. SODIUM CHLORIDE. [Concomitant]
     Active Substance: SODIUM CHLORIDE

REACTIONS (2)
  - Nausea [Unknown]
  - Vitamin D decreased [Unknown]
